FAERS Safety Report 23553672 (Version 2)
Quarter: 2024Q2

REPORT INFORMATION
  Report Type: Report from Study
  Country: US (occurrence: US)
  Receive Date: 20240222
  Receipt Date: 20240603
  Transmission Date: 20240715
  Serious: Yes (Other)
  Sender: FDA-Public Use
  Company Number: US-JNJFOC-20240250671

PATIENT
  Age: 58 Year
  Sex: Female

DRUGS (1)
  1. SPRAVATO [Suspect]
     Active Substance: ESKETAMINE
     Indication: Depression
     Dosage: ^84 MG, 5 TOTAL DOSES^
     Dates: start: 20230918, end: 20231127

REACTIONS (2)
  - Uterine prolapse [Recovering/Resolving]
  - Rectal prolapse [Recovering/Resolving]
